FAERS Safety Report 21516632 (Version 1)
Quarter: 2022Q4

REPORT INFORMATION
  Report Type: Spontaneous
  Country: PT (occurrence: PT)
  Receive Date: 20221027
  Receipt Date: 20221027
  Transmission Date: 20230113
  Serious: Yes (Other)
  Sender: FDA-Public Use
  Company Number: PT-PADAGIS-2022PAD00860

PATIENT

DRUGS (8)
  1. DOXORUBICIN HYDROCHLORIDE [Suspect]
     Active Substance: DOXORUBICIN HYDROCHLORIDE
     Indication: Serous cystadenocarcinoma ovary
     Dosage: 30 MG/M2
     Route: 065
  2. TRABECTEDIN [Suspect]
     Active Substance: TRABECTEDIN
     Indication: Serous cystadenocarcinoma ovary
     Dosage: 1.1 MG/M2
     Route: 065
  3. GEMCITABINE [Concomitant]
     Active Substance: GEMCITABINE
     Indication: Serous cystadenocarcinoma ovary
     Dosage: 800 MG/M2 ON DAYS 1 AND 8
     Route: 065
  4. CARBOPLATIN [Concomitant]
     Active Substance: CARBOPLATIN
     Indication: Serous cystadenocarcinoma ovary
     Dosage: AUC 5 ON DAY 1 (WAS MAINTAINED FOR 22 CYCLES)
     Route: 065
  5. CARBOPLATIN [Concomitant]
     Active Substance: CARBOPLATIN
     Dosage: AUC 6
     Route: 065
  6. BEVACIZUMAB [Concomitant]
     Active Substance: BEVACIZUMAB
     Indication: Serous cystadenocarcinoma ovary
     Dosage: 15 MG/KG (WAS MAINTAINED FOR 22 CYCLES)
     Route: 065
  7. PLATINUM [Concomitant]
     Active Substance: PLATINUM
     Indication: Serous cystadenocarcinoma ovary
     Dosage: UNK
     Route: 065
  8. PACLITAXEL [Concomitant]
     Active Substance: PACLITAXEL
     Indication: Serous cystadenocarcinoma ovary
     Dosage: 175 MG/M2 (3-WEEK CYCLES)
     Route: 065

REACTIONS (4)
  - Cholestasis [Unknown]
  - Disease progression [Unknown]
  - Neutropenia [Unknown]
  - Therapy partial responder [Unknown]
